FAERS Safety Report 6196474-9 (Version None)
Quarter: 2009Q2

REPORT INFORMATION
  Report Type: 
  Country: None (occurrence: None)
  Receive Date: 20090520
  Receipt Date: 20090512
  Transmission Date: 20091009
  Serious: Yes (Other)
  Sender: FDA-Public Use
  Company Number: US-JNJFOC-20090503171

PATIENT
  Age: 9 Year
  Sex: Female
  Weight: 44 kg

DRUGS (2)
  1. TYLENOL (CAPLET) [Suspect]
     Route: 048
  2. TYLENOL (CAPLET) [Suspect]
     Indication: JUVENILE ARTHRITIS
     Route: 048

REACTIONS (1)
  - PRODUCT TAMPERING [None]
